FAERS Safety Report 8553252-0 (Version None)
Quarter: 2012Q3

REPORT INFORMATION
  Report Type: 
  Country: None (occurrence: None)
  Receive Date: 20120731
  Receipt Date: 20120723
  Transmission Date: 20120928
  Serious: Yes (Other)
  Sender: FDA-Public Use
  Company Number: JP-VERTEX PHARMACEUTICALS INC.-AE-2012-006228

PATIENT
  Age: 64 Year
  Sex: Male

DRUGS (8)
  1. TELAVIC (TELAPREVIR) [Suspect]
     Indication: HEPATITIS C
     Route: 048
     Dates: start: 20120123, end: 20120416
  2. URSO 250 [Concomitant]
     Route: 048
  3. RIBAVIRIN [Concomitant]
     Indication: HEPATITIS C
     Route: 048
     Dates: start: 20120123, end: 20120325
  4. JANUVIA [Concomitant]
     Route: 048
  5. PEGINTERFERON ALFA-2B [Concomitant]
     Indication: HEPATITIS C
     Route: 058
     Dates: start: 20120123
  6. DIBETOS [Concomitant]
     Route: 048
  7. RIBAVIRIN [Concomitant]
     Route: 048
     Dates: start: 20120326
  8. GLIMICRON [Concomitant]
     Route: 048

REACTIONS (1)
  - RETINOPATHY [None]
